FAERS Safety Report 19871904 (Version 1)
Quarter: 2021Q3

REPORT INFORMATION
  Report Type: Spontaneous
  Country: US (occurrence: US)
  Receive Date: 20210923
  Receipt Date: 20210923
  Transmission Date: 20211014
  Serious: Yes (Other)
  Sender: FDA-Public Use
  Company Number: None

PATIENT
  Age: 45 Year
  Sex: Male

DRUGS (1)
  1. REGEN?COV [Suspect]
     Active Substance: CASIRIVIMAB\IMDEVIMAB
     Indication: EXPOSURE TO SARS-COV-2
     Dosage: ?          OTHER FREQUENCY:ONCE;?
     Route: 058
     Dates: start: 20210923, end: 20210923

REACTIONS (4)
  - Vomiting [None]
  - Hyperhidrosis [None]
  - Loss of consciousness [None]
  - Blood pressure increased [None]

NARRATIVE: CASE EVENT DATE: 20210923
